FAERS Safety Report 8816415 (Version 1)
Quarter: 2012Q4

REPORT INFORMATION
  Report Type: Spontaneous
  Country: DE (occurrence: None)
  Receive Date: 20120927
  Receipt Date: 20120927
  Transmission Date: 20130627
  Serious: Yes (Other)
  Sender: FDA-Public Use
  Company Number: GER/GER/12/0025942

PATIENT
  Age: 27 Year
  Sex: Female
  Weight: 52.5 kg

DRUGS (3)
  1. LEVETIRACETAM [Suspect]
     Indication: EPILEPSY
     Dosage: 2000 MG, 1 IN 1 D, ORAL
     Route: 048
     Dates: start: 20110518, end: 20120204
  2. FOLIO FORTE (FOLIO) [Concomitant]
  3. ERYTHROMYCIN (ERYTHROMYCIN) [Concomitant]

REACTIONS (2)
  - Ventouse extraction [None]
  - Exposure during pregnancy [None]
